FAERS Safety Report 4983558-3 (Version None)
Quarter: 2006Q2

REPORT INFORMATION
  Report Type: 
  Country: None (occurrence: None)
  Receive Date: 20060426
  Receipt Date: 20060414
  Transmission Date: 20061013
  Serious: Yes (Hospitalization)
  Sender: FDA-Public Use
  Company Number: JP-ROCHE-444542

PATIENT
  Age: 75 Year
  Sex: Male

DRUGS (2)
  1. DENOSINE IV [Suspect]
     Indication: CYTOMEGALOVIRUS TEST POSITIVE
     Route: 042
     Dates: start: 20060302
  2. ENDOXAN [Suspect]
     Indication: GOODPASTURE'S SYNDROME
     Route: 065

REACTIONS (1)
  - BONE MARROW FAILURE [None]
